FAERS Safety Report 4441944-4 (Version None)
Quarter: 2004Q3

REPORT INFORMATION
  Report Type: 
  Country: None (occurrence: None)
  Receive Date: 20040907
  Receipt Date: 20040520
  Transmission Date: 20050211
  Serious: Yes (Other)
  Sender: FDA-Public Use
  Company Number: US-GLAXOSMITHKLINE-A0511593A

PATIENT
  Sex: Male

DRUGS (11)
  1. PAXIL [Suspect]
     Indication: PANIC DISORDER
     Dosage: 40MG PER DAY
     Route: 048
  2. FUROSEMIDE [Concomitant]
  3. LISINOPRIL [Concomitant]
  4. SIMVASTATIN [Concomitant]
  5. METAPROTERENOL [Concomitant]
  6. RANITIDINE [Concomitant]
  7. HYDROCHLOROTHIAZIDE [Concomitant]
  8. TERAZOSIN HCL [Concomitant]
  9. LASIX [Concomitant]
  10. DILTIAZEM [Concomitant]
  11. POTASSIUM [Concomitant]

REACTIONS (8)
  - ABNORMAL DREAMS [None]
  - AGITATION [None]
  - ANGER [None]
  - ANXIETY [None]
  - INSOMNIA [None]
  - NAUSEA [None]
  - SUICIDAL IDEATION [None]
  - VERTIGO [None]
